FAERS Safety Report 21553128 (Version 1)
Quarter: 2022Q4

REPORT INFORMATION
  Report Type: Report from Study
  Country: US (occurrence: US)
  Receive Date: 20221104
  Receipt Date: 20221104
  Transmission Date: 20230113
  Serious: Yes (Other)
  Sender: FDA-Public Use
  Company Number: US-ABBVIE-22K-163-4518253-00

PATIENT
  Age: 66 Year
  Sex: Female

DRUGS (5)
  1. HUMIRA [Suspect]
     Active Substance: ADALIMUMAB
     Indication: Rheumatoid arthritis
     Dosage: CITRATE FREE
     Route: 058
     Dates: start: 2020
  2. COVID-19 vaccine [Concomitant]
     Indication: COVID-19 immunisation
     Dates: start: 202209, end: 202209
  3. PFIZER-BIONTECH COVID-19 VACCINE [Concomitant]
     Active Substance: TOZINAMERAN
     Indication: COVID-19 immunisation
     Dosage: FIRST DOSE ONCE
     Route: 030
     Dates: start: 20210224, end: 20210224
  4. PFIZER-BIONTECH COVID-19 VACCINE [Concomitant]
     Active Substance: TOZINAMERAN
     Indication: COVID-19 immunisation
     Dosage: SECOND DOSE ONCE
     Route: 058
     Dates: start: 20210317, end: 20210317
  5. PFIZER-BIONTECH COVID-19 VACCINE [Concomitant]
     Active Substance: TOZINAMERAN
     Indication: COVID-19 immunisation
     Dosage: THIRD DOSE  ONCE
     Route: 030
     Dates: start: 20210823, end: 20210823

REACTIONS (10)
  - Cataract [Recovering/Resolving]
  - SARS-CoV-2 test positive [Recovering/Resolving]
  - Interstitial granulomatous dermatitis [Not Recovered/Not Resolved]
  - Gait inability [Recovering/Resolving]
  - Purpura [Not Recovered/Not Resolved]
  - Herpes zoster [Recovering/Resolving]
  - Skin disorder [Unknown]
  - Rheumatoid arthritis [Recovering/Resolving]
  - Staphylococcal infection [Recovering/Resolving]
  - Arthritis [Not Recovered/Not Resolved]

NARRATIVE: CASE EVENT DATE: 20220701
